FAERS Safety Report 6063401-4 (Version None)
Quarter: 2009Q1

REPORT INFORMATION
  Report Type: 
  Country: None (occurrence: None)
  Receive Date: 20090203
  Receipt Date: 20090127
  Transmission Date: 20090719
  Serious: Yes (Death, Hospitalization, Other)
  Sender: FDA-Public Use
  Company Number: PHHO2009US00987

PATIENT
  Sex: Male

DRUGS (7)
  1. NEORAL [Suspect]
     Dosage: 125 MILLIGRAM 2/1 DAY
     Dates: end: 20090106
  2. BASILIXIMAB [Suspect]
     Route: 042
  3. BELATACEPT [Suspect]
  4. MYCOPHENOLATE MOFETIL [Suspect]
     Dosage: 1000 MILLIGRAM 1 DAY
     Route: 048
     Dates: start: 20080613, end: 20081117
  5. ATENOLOL [Concomitant]
  6. LORAZEPAM [Concomitant]
  7. PEG-INTRON [Concomitant]

REACTIONS (14)
  - ACIDOSIS [None]
  - BLOOD AMYLASE ABNORMAL [None]
  - CARDIAC ENZYMES INCREASED [None]
  - DEHYDRATION [None]
  - DIARRHOEA [None]
  - HEPATIC ENCEPHALOPATHY [None]
  - HEPATIC FAILURE [None]
  - HEPATIC FIBROSIS [None]
  - HEPATITIS CHOLESTATIC [None]
  - LIPASE ABNORMAL [None]
  - MENTAL STATUS CHANGES [None]
  - METABOLIC ACIDOSIS [None]
  - PANCREATITIS [None]
  - RENAL FAILURE [None]
